FAERS Safety Report 5874403-2 (Version None)
Quarter: 2008Q3

REPORT INFORMATION
  Report Type: 
  Country: None (occurrence: None)
  Receive Date: 20080908
  Receipt Date: 20080827
  Transmission Date: 20090109
  Serious: Yes (Hospitalization)
  Sender: FDA-Public Use
  Company Number: US-PFIZER INC-2008019258

PATIENT
  Sex: Female
  Weight: 52.6 kg

DRUGS (11)
  1. SUTENT [Suspect]
     Indication: NEOPLASM
     Route: 048
     Dates: start: 20071129, end: 20080213
  2. ALIMTA [Suspect]
     Indication: NEOPLASM
     Route: 042
     Dates: start: 20071129, end: 20080131
  3. ASCORBIC ACID [Concomitant]
     Route: 048
     Dates: start: 20061101
  4. MULTI-VITAMINS [Concomitant]
     Route: 048
     Dates: start: 20071101
  5. PSYLLIUM HYDROPHILIC MUCILLOID [Concomitant]
     Route: 048
     Dates: start: 20070501
  6. SENOKOT [Concomitant]
     Route: 048
     Dates: start: 20070101
  7. ATIVAN [Concomitant]
     Route: 048
     Dates: start: 20070101
  8. ZOFRAN [Concomitant]
     Route: 048
     Dates: start: 20070101
  9. COLACE [Concomitant]
     Route: 048
     Dates: start: 20071213
  10. VITAMIN E [Concomitant]
     Route: 048
     Dates: start: 20080221
  11. PEPCID [Concomitant]
     Route: 048
     Dates: start: 20080201

REACTIONS (1)
  - TUMOUR LOCAL INVASION [None]
